FAERS Safety Report 7971746-3 (Version None)
Quarter: 2011Q4

REPORT INFORMATION
  Report Type: 
  Country: None (occurrence: None)
  Receive Date: 20111212
  Receipt Date: 20111206
  Transmission Date: 20120403
  Serious: No
  Sender: FDA-Public Use
  Company Number: US-B.I. PHARMACEUTICALS,INC./RIDGEFIELD-2011-BP-27576BP

PATIENT
  Sex: Male

DRUGS (3)
  1. BYSTOLIC [Concomitant]
  2. TRADJENTA [Suspect]
     Indication: DIABETES MELLITUS
     Dosage: 5 MG
     Route: 048
     Dates: end: 20111004
  3. GLUCOVANCE [Concomitant]

REACTIONS (1)
  - SWOLLEN TONGUE [None]
